FAERS Safety Report 4682352-0 (Version None)
Quarter: 2005Q2

REPORT INFORMATION
  Report Type: 
  Country: None (occurrence: None)
  Receive Date: 20050606
  Receipt Date: 20050419
  Transmission Date: 20051028
  Serious: Yes (Other)
  Sender: FDA-Public Use
  Company Number: PHBS2005BE05748

PATIENT
  Age: 78 Year
  Sex: Male

DRUGS (6)
  1. SELOZOK [Concomitant]
     Dates: start: 20030401
  2. ASAFLOW [Concomitant]
     Dates: start: 20030401
  3. LASIX [Concomitant]
     Dates: start: 20030401
  4. STEOVIT D3 [Concomitant]
     Dates: start: 20030401
  5. ZESTRIL [Concomitant]
     Dates: start: 20030401
  6. ZOMETA [Suspect]
     Indication: OSTEOPOROSIS
     Dosage: 4 MG EVERY 4 WKS
     Route: 065
     Dates: start: 20030101, end: 20050201

REACTIONS (6)
  - ASEPTIC NECROSIS BONE [None]
  - BONE DEBRIDEMENT [None]
  - HYPERBARIC OXYGEN THERAPY [None]
  - MYOCARDIAL INFARCTION [None]
  - PLASTIC SURGERY [None]
  - PULMONARY OEDEMA [None]
